FAERS Safety Report 9478272 (Version 2)
Quarter: 2013Q3

REPORT INFORMATION
  Report Type: Spontaneous
  Country: US (occurrence: None)
  Receive Date: 20130822
  Receipt Date: 20130830
  Transmission Date: 20140515
  Serious: Yes (Other)
  Sender: FDA-Public Use
  Company Number: USA/USA/13/0034200

PATIENT
  Age: 37 Year
  Sex: Female

DRUGS (2)
  1. IMITREX [Suspect]
     Indication: MIGRAINE
     Dosage: 200MG 1 IN 1D
  2. ALEVE [Suspect]
     Indication: MIGRAINE
     Dosage: 440MG 1 IN 1D

REACTIONS (4)
  - Colitis ischaemic [None]
  - Gastric haemorrhage [None]
  - Drug interaction [None]
  - Large intestinal haemorrhage [None]
